FAERS Safety Report 9412317 (Version 1)
Quarter: 2013Q3

REPORT INFORMATION
  Report Type: Spontaneous
  Country: US (occurrence: US)
  Receive Date: 20130722
  Receipt Date: 20130722
  Transmission Date: 20140515
  Serious: No
  Sender: FDA-Public Use
  Company Number: US-UPSHER-SMITH LABORATORIES, INC.-13002420

PATIENT
  Age: 90 Year
  Sex: Male

DRUGS (5)
  1. JANTOVEN [Suspect]
     Indication: CEREBROVASCULAR ACCIDENT
     Dosage: 6 MG QD ON M,W,F; 4 MG QD ALL OTHER DAYS OF WEEK
     Route: 048
     Dates: start: 2012
  2. TORSEMIDE [Concomitant]
     Dosage: UNK
  3. KLOR-CON [Concomitant]
     Dosage: UNK
  4. TAMSULOSIN [Concomitant]
     Dosage: UNK
  5. VITAMINS FOR EYES [Concomitant]
     Dosage: UNK

REACTIONS (1)
  - Erythema [Not Recovered/Not Resolved]
